FAERS Safety Report 7186907-3 (Version None)
Quarter: 2010Q4

REPORT INFORMATION
  Report Type: 
  Country: None (occurrence: None)
  Receive Date: 20101222
  Receipt Date: 20101217
  Transmission Date: 20110411
  Serious: Yes (Hospitalization)
  Sender: FDA-Public Use
  Company Number: IT-ELI_LILLY_AND_COMPANY-IT201011004408

PATIENT
  Sex: Male
  Weight: 65 kg

DRUGS (11)
  1. PEMETREXED [Suspect]
     Indication: NON-SMALL CELL LUNG CANCER
     Dosage: 500 MG/M2, DAY 1 EVERY 21 DAYS
     Route: 042
     Dates: start: 20101108
  2. CISPLATIN [Suspect]
     Indication: NON-SMALL CELL LUNG CANCER
     Dosage: 75 MG/M2, 1 EVERY 21 DAYS
     Route: 042
     Dates: start: 20101108
  3. BEVACIZUMAB [Suspect]
     Indication: NON-SMALL CELL LUNG CANCER
     Dosage: 7.5 MG/KG, DAY 1 EVERY 21 DAYS
     Dates: start: 20101108
  4. FOLIC ACID [Concomitant]
     Indication: PROPHYLAXIS
     Dates: start: 20101011
  5. VITAMIN B-12 [Concomitant]
     Indication: PROPHYLAXIS
     Dates: start: 20101011
  6. DEXAMETHASONE [Concomitant]
     Indication: PROPHYLAXIS
     Dates: start: 20101011
  7. OXYCODONE [Concomitant]
     Indication: BONE PAIN
     Dates: start: 20101025
  8. PARACETAMOL [Concomitant]
     Indication: PYREXIA
     Dates: start: 20101111
  9. LYRICA [Concomitant]
     Indication: PAIN
     Dates: start: 20101109
  10. CEFTRIAXONE [Concomitant]
     Indication: PYREXIA
     Dates: start: 20101111
  11. LANSOPRAZOLE [Concomitant]
     Indication: GASTRIC DISORDER
     Dates: start: 20101011

REACTIONS (1)
  - DEEP VEIN THROMBOSIS [None]
